FAERS Safety Report 12986742 (Version 1)
Quarter: 2016Q4

REPORT INFORMATION
  Report Type: Spontaneous
  Country: FI (occurrence: FI)
  Receive Date: 20161130
  Receipt Date: 20161130
  Transmission Date: 20170207
  Serious: Yes (Hospitalization, Other)
  Sender: FDA-Public Use
  Company Number: FI-TEVA-713009ISR

PATIENT
  Age: 70 Year
  Sex: Male

DRUGS (3)
  1. PRADAXA [Suspect]
     Active Substance: DABIGATRAN ETEXILATE MESYLATE
     Dosage: 300 MILLIGRAM DAILY;
     Route: 048
     Dates: start: 20150524, end: 20160615
  2. BISOPROLOL ACTAVIS [Suspect]
     Active Substance: BISOPROLOL
     Dosage: 5 MILLIGRAM DAILY;
     Route: 048
     Dates: start: 2006, end: 20160415
  3. ATENOLOL. [Suspect]
     Active Substance: ATENOLOL

REACTIONS (6)
  - Pneumonitis [Unknown]
  - Stridor [Unknown]
  - Suffocation feeling [Unknown]
  - Poor quality sleep [Unknown]
  - Sputum increased [Not Recovered/Not Resolved]
  - Dyspnoea exertional [Not Recovered/Not Resolved]

NARRATIVE: CASE EVENT DATE: 2015
